FAERS Safety Report 9191568 (Version 1)
Quarter: 2013Q1

REPORT INFORMATION
  Report Type: Spontaneous
  Country: JP (occurrence: JP)
  Receive Date: 20130326
  Receipt Date: 20130326
  Transmission Date: 20140127
  Serious: Yes (Life-Threatening, Hospitalization)
  Sender: FDA-Public Use
  Company Number: JP-ABBOTT-13P-087-1041449-00

PATIENT
  Age: 78 Year
  Sex: Male

DRUGS (12)
  1. LUPRON DEPOT [Suspect]
     Indication: PROSTATE CANCER
     Route: 058
     Dates: start: 20121203, end: 20130107
  2. CASODEX [Suspect]
     Indication: PROSTATE CANCER
     Route: 048
     Dates: start: 20121120, end: 20130121
  3. WARFARIN [Concomitant]
     Indication: PULMONARY EMBOLISM
     Dosage: 4.5 MG AT MAXIMUM
     Route: 048
     Dates: start: 20121113
  4. WARFARIN [Concomitant]
     Indication: DEEP VEIN THROMBOSIS
  5. FERRUM [Concomitant]
     Indication: ANAEMIA
     Route: 048
     Dates: start: 20121114, end: 20121204
  6. BAYASPIRIN [Concomitant]
     Indication: CORONARY ARTERIAL STENT INSERTION
     Route: 048
     Dates: start: 2006
  7. PLAVIX [Concomitant]
     Indication: CORONARY ARTERIAL STENT INSERTION
     Route: 048
     Dates: start: 2006, end: 20130124
  8. NITOROL R [Concomitant]
     Indication: ANGINA PECTORIS
     Route: 048
     Dates: start: 2006
  9. FUROSEMIDE [Concomitant]
     Indication: OEDEMA PERIPHERAL
     Route: 048
     Dates: start: 2006, end: 20130129
  10. MICARDIS [Concomitant]
     Indication: HYPERTENSION
     Route: 048
     Dates: start: 2006
  11. CRESTOR [Concomitant]
     Indication: HYPERLIPIDAEMIA
     Route: 048
     Dates: start: 2006
  12. URITOS [Concomitant]
     Indication: HYPERTONIC BLADDER
     Route: 048
     Dates: end: 20130126

REACTIONS (1)
  - Interstitial lung disease [Recovered/Resolved with Sequelae]
